FAERS Safety Report 20257798 (Version 2)
Quarter: 2022Q1

REPORT INFORMATION
  Report Type: Report from Study
  Country: CA (occurrence: CA)
  Receive Date: 20211230
  Receipt Date: 20220112
  Transmission Date: 20220423
  Serious: Yes (Other)
  Sender: FDA-Public Use
  Company Number: CA-UCBSA-2021059207

PATIENT
  Age: 30 Year
  Sex: Female

DRUGS (1)
  1. CERTOLIZUMAB PEGOL [Suspect]
     Active Substance: CERTOLIZUMAB PEGOL
     Indication: Ankylosing spondylitis
     Dosage: 400 MILLIGRAM, EV 2 WEEKS(QOW)
     Route: 058
     Dates: start: 20211201, end: 20211201

REACTIONS (4)
  - Pneumonia [Recovered/Resolved]
  - Sinusitis [Recovered/Resolved]
  - Influenza [Recovered/Resolved]
  - SARS-CoV-2 test negative [Unknown]

NARRATIVE: CASE EVENT DATE: 20211201
